FAERS Safety Report 15262642 (Version 1)
Quarter: 2018Q3

REPORT INFORMATION
  Report Type: Spontaneous
  Country: US (occurrence: US)
  Receive Date: 20180720
  Receipt Date: 20180720
  Transmission Date: 20181010
  Serious: Yes (Hospitalization)
  Sender: FDA-Public Use
  Company Number: None

PATIENT
  Age: 62 Year
  Sex: Female

DRUGS (10)
  1. DICYCLOMINE 20MG [Concomitant]
  2. PREMARIN 1.25MG [Concomitant]
  3. PROGESTERONE 200MG [Concomitant]
  4. PREDNISONE 5MG [Concomitant]
     Active Substance: PREDNISONE
  5. TEMAZEPAM 30MG [Concomitant]
     Active Substance: TEMAZEPAM
  6. HUMATROPE [Suspect]
     Active Substance: SOMATROPIN
     Indication: HYPOTHALAMO-PITUITARY DISORDER
     Route: 058
     Dates: start: 20180517
  7. DIAZEPAM 2MG [Concomitant]
     Active Substance: DIAZEPAM
  8. ESTRADIOL 0.1MG TRANSDERMAL [Concomitant]
  9. HYDROCODONE/APAP 5/325 [Concomitant]
     Active Substance: ACETAMINOPHEN\HYDROCODONE
  10. SYNTHROID [Concomitant]
     Active Substance: LEVOTHYROXINE SODIUM

REACTIONS (2)
  - Drug dose omission [None]
  - Gastroenteritis viral [None]

NARRATIVE: CASE EVENT DATE: 20180719
